FAERS Safety Report 18296731 (Version 1)
Quarter: 2020Q3

REPORT INFORMATION
  Report Type: Spontaneous
  Country: IT (occurrence: IT)
  Receive Date: 20200922
  Receipt Date: 20200922
  Transmission Date: 20201103
  Serious: Yes (Other)
  Sender: FDA-Public Use
  Company Number: IT-PFIZER INC-2020362656

PATIENT
  Age: 19 Year
  Sex: Female

DRUGS (4)
  1. XANAX [Suspect]
     Active Substance: ALPRAZOLAM
     Dosage: 7 DF, TOTAL
     Route: 048
     Dates: start: 20180829, end: 20180829
  2. TRILAFON [Suspect]
     Active Substance: PERPHENAZINE
     Dosage: 1 DF, TOTAL
     Route: 048
     Dates: start: 20180829, end: 20180829
  3. SERTRALINE [Concomitant]
     Active Substance: SERTRALINE HYDROCHLORIDE
     Indication: EATING DISORDER
     Dosage: 100 MG, 1X/DAY
     Route: 048
  4. VALDORM [FLURAZEPAM HYDROCHLORIDE] [Suspect]
     Active Substance: FLURAZEPAM HYDROCHLORIDE
     Dosage: 5 DF, TOTAL
     Route: 048
     Dates: start: 20180829, end: 20180829

REACTIONS (4)
  - Bradyphrenia [Recovering/Resolving]
  - Bradykinesia [Recovering/Resolving]
  - Drug abuse [Recovering/Resolving]
  - Hypokinesia [Recovering/Resolving]

NARRATIVE: CASE EVENT DATE: 20180829
